FAERS Safety Report 23075078 (Version 1)
Quarter: 2023Q4

REPORT INFORMATION
  Report Type: Spontaneous
  Country: US (occurrence: US)
  Receive Date: 20231017
  Receipt Date: 20231017
  Transmission Date: 20240110
  Serious: Yes (Hospitalization, Other)
  Sender: FDA-Public Use
  Company Number: US-AMGEN-USASP2023181051

PATIENT
  Age: 30 Year
  Sex: Female

DRUGS (4)
  1. ROMIPLOSTIM [Suspect]
     Active Substance: ROMIPLOSTIM
     Indication: Immune thrombocytopenia
     Dosage: 2 MICROGRAM/KILOGRAM
     Route: 058
  2. ELTROMBOPAG [Concomitant]
     Active Substance: ELTROMBOPAG
  3. AZATHIOPRINE [Concomitant]
     Active Substance: AZATHIOPRINE
  4. FOSTAMATINIB [Concomitant]
     Active Substance: FOSTAMATINIB

REACTIONS (6)
  - Haemorrhage intracranial [Unknown]
  - Abdominal pain [Unknown]
  - Nausea [Unknown]
  - Vomiting [Unknown]
  - Diarrhoea [Unknown]
  - Pulmonary embolism [Unknown]
